FAERS Safety Report 5871232-0 (Version None)
Quarter: 2008Q3

REPORT INFORMATION
  Report Type: 
  Country: None (occurrence: None)
  Receive Date: 20080902
  Receipt Date: 20080819
  Transmission Date: 20090109
  Serious: Yes (Other)
  Sender: FDA-Public Use
  Company Number: 2008-03088

PATIENT
  Age: 74 Year
  Sex: Female
  Weight: 37 kg

DRUGS (1)
  1. VELCADE [Suspect]
     Indication: MULTIPLE MYELOMA
     Dosage: 1.3 MG/M2 INTRAVENOUS
     Route: 042
     Dates: start: 20080722

REACTIONS (2)
  - ALTERED STATE OF CONSCIOUSNESS [None]
  - PYREXIA [None]
